FAERS Safety Report 7959917-3 (Version None)
Quarter: 2011Q4

REPORT INFORMATION
  Report Type: 
  Country: None (occurrence: None)
  Receive Date: 20111206
  Receipt Date: 20111128
  Transmission Date: 20120403
  Serious: Yes (Hospitalization, Disabling, Other)
  Sender: FDA-Public Use
  Company Number: CA-MERCK-1111USA03908

PATIENT
  Age: 62 Year
  Sex: Female
  Weight: 62 kg

DRUGS (3)
  1. FOSAMAX [Suspect]
     Indication: OSTEOPENIA
     Route: 048
     Dates: start: 20040101, end: 20110101
  2. DIOVAN [Concomitant]
     Route: 048
  3. PREVACID [Concomitant]
     Route: 048

REACTIONS (2)
  - FEMUR FRACTURE [None]
  - FALL [None]
